FAERS Safety Report 12982911 (Version 1)
Quarter: 2016Q4

REPORT INFORMATION
  Report Type: Spontaneous
  Country: US (occurrence: US)
  Receive Date: 20161129
  Receipt Date: 20161129
  Transmission Date: 20170207
  Serious: No
  Sender: FDA-Public Use
  Company Number: US-MALLINCKRODT-T201505300

PATIENT
  Age: 34 Year
  Sex: Female
  Weight: 63 kg

DRUGS (10)
  1. CARISOPRODOL. [Concomitant]
     Active Substance: CARISOPRODOL
  2. OMEPRAZOLE. [Concomitant]
     Active Substance: OMEPRAZOLE
  3. FENTANYL TRANSDERMAL SYSTEM [Suspect]
     Active Substance: FENTANYL
     Indication: PAIN MANAGEMENT
     Dosage: 100 MCG/HR; ONE PATCH EVERY 72 HOURS
     Route: 062
     Dates: start: 201507
  4. ALBUTEROL. [Concomitant]
     Active Substance: ALBUTEROL
  5. SUDAFED [Concomitant]
     Active Substance: PSEUDOEPHEDRINE HYDROCHLORIDE
  6. LISINOPRIL. [Concomitant]
     Active Substance: LISINOPRIL
     Dosage: 20 MG
  7. TRAMADOL. [Concomitant]
     Active Substance: TRAMADOL
     Dosage: 2 TABS QID
  8. REMERON [Concomitant]
     Active Substance: MIRTAZAPINE
  9. PROMETHAZINE [Concomitant]
     Active Substance: PROMETHAZINE\PROMETHAZINE HYDROCHLORIDE
     Dosage: 25 MG
  10. ZOFRAN [Concomitant]
     Active Substance: ONDANSETRON HYDROCHLORIDE

REACTIONS (5)
  - Product adhesion issue [Not Recovered/Not Resolved]
  - Lower respiratory tract infection [Recovering/Resolving]
  - Drug effect decreased [Not Recovered/Not Resolved]
  - Influenza [Recovered/Resolved]
  - Wrong technique in product usage process [Not Recovered/Not Resolved]

NARRATIVE: CASE EVENT DATE: 20151018
